FAERS Safety Report 22084856 (Version 1)
Quarter: 2023Q1

REPORT INFORMATION
  Report Type: Spontaneous
  Country: GB (occurrence: GB)
  Receive Date: 20230310
  Receipt Date: 20230310
  Transmission Date: 20230418
  Serious: No
  Sender: FDA-Public Use
  Company Number: None

PATIENT
  Age: 54 Year
  Sex: Male
  Weight: 82 kg

DRUGS (4)
  1. PAXLOVID [Suspect]
     Active Substance: NIRMATRELVIR\RITONAVIR
     Indication: COVID-19 treatment
     Dosage: 250 MG
     Dates: start: 20230303
  2. LYMECYCLINE [Concomitant]
     Active Substance: LYMECYCLINE
     Indication: Skin toxicity
     Dosage: 408 MG, DAILY
  3. VECTIBIX [Concomitant]
     Active Substance: PANITUMUMAB
     Indication: Gastrointestinal carcinoma
     Dosage: INFUSION EVERY 2 WEEKS
     Dates: start: 202008
  4. VEDOLIZUMAB [Concomitant]
     Active Substance: VEDOLIZUMAB
     Indication: Colitis ulcerative
     Dosage: EVERY 8 WEEKS FOR OVER 5 YEARS

REACTIONS (2)
  - Dysgeusia [Not Recovered/Not Resolved]
  - Incorrect dose administered [Unknown]

NARRATIVE: CASE EVENT DATE: 20230303
